FAERS Safety Report 16149284 (Version 1)
Quarter: 2019Q2

REPORT INFORMATION
  Report Type: Spontaneous
  Country: IE (occurrence: IE)
  Receive Date: 20190402
  Receipt Date: 20190402
  Transmission Date: 20190711
  Serious: Yes (Hospitalization)
  Sender: FDA-Public Use
  Company Number: IE-WHANIN PHARM. CO., LTD.-2019M1023923

PATIENT
  Sex: Male

DRUGS (2)
  1. CLOZARIL [Suspect]
     Active Substance: CLOZAPINE
     Dosage: UNK
     Route: 048
     Dates: start: 201903, end: 20190323
  2. CLOZARIL [Suspect]
     Active Substance: CLOZAPINE
     Indication: SCHIZOPHRENIA
     Dosage: UNK
     Route: 048
     Dates: start: 20190304, end: 201903

REACTIONS (5)
  - Lower respiratory tract infection [Unknown]
  - Body temperature increased [Unknown]
  - C-reactive protein increased [Unknown]
  - Heart rate increased [Unknown]
  - Troponin increased [Recovered/Resolved]

NARRATIVE: CASE EVENT DATE: 201903
